FAERS Safety Report 25486316 (Version 1)
Quarter: 2025Q2

REPORT INFORMATION
  Report Type: Spontaneous
  Country: US (occurrence: US)
  Receive Date: 20250626
  Receipt Date: 20250626
  Transmission Date: 20250717
  Serious: No
  Sender: SANOFI AVENTIS
  Company Number: US-SA-2025SA179975

PATIENT
  Sex: Male

DRUGS (8)
  1. DUPIXENT [Suspect]
     Active Substance: DUPILUMAB
     Indication: Nasal polyps
     Dosage: 300 MG, QOW
     Route: 058
  2. ANASTROZOLE [Concomitant]
     Active Substance: ANASTROZOLE
  3. BUDESONIDE [Concomitant]
     Active Substance: BUDESONIDE
  4. FISH OIL [Concomitant]
     Active Substance: FISH OIL
  5. FLAXSEED [Concomitant]
     Active Substance: FLAX SEED
  6. LORATADINE [Concomitant]
     Active Substance: LORATADINE
  7. MONTELUKAST [Concomitant]
     Active Substance: MONTELUKAST
  8. TADALAFIL [Concomitant]
     Active Substance: TADALAFIL

REACTIONS (1)
  - Inappropriate schedule of product administration [Unknown]
